FAERS Safety Report 7970853-9 (Version None)
Quarter: 2011Q4

REPORT INFORMATION
  Report Type: 
  Country: None (occurrence: None)
  Receive Date: 20111212
  Receipt Date: 20111205
  Transmission Date: 20120403
  Serious: Yes (Hospitalization)
  Sender: FDA-Public Use
  Company Number: US-GLAXOSMITHKLINE-A0957413A

PATIENT
  Age: 65 Year
  Sex: Female

DRUGS (1)
  1. REQUIP [Suspect]
     Dosage: 3MG UNKNOWN
     Route: 065
     Dates: start: 20091210

REACTIONS (1)
  - SURGERY [None]
